FAERS Safety Report 4791121-2 (Version None)
Quarter: 2005Q4

REPORT INFORMATION
  Report Type: 
  Country: None (occurrence: None)
  Receive Date: 20051005
  Receipt Date: 20050915
  Transmission Date: 20060501
  Serious: No
  Sender: FDA-Public Use
  Company Number: 13567

PATIENT
  Age: 80 Year
  Sex: Male

DRUGS (15)
  1. CLOFARABINE [Suspect]
     Indication: ACUTE MYELOID LEUKAEMIA
     Dosage: 53 MG QD, IV
     Route: 042
     Dates: start: 20050228, end: 20050304
  2. BISOPROLOL [Concomitant]
  3. ALLOPURINOL [Concomitant]
  4. NYSTATIN [Concomitant]
  5. ZOTON [Concomitant]
  6. ACYCLOVIR [Concomitant]
  7. ITRACONAZOLE [Concomitant]
  8. SEPTRIN [Concomitant]
  9. ZOFRAN [Concomitant]
  10. CHLORPHENIRAMINE MALEATE [Concomitant]
  11. MOVICOL [Concomitant]
  12. ZOVIRAX [Concomitant]
  13. LOCOID CREAM [Concomitant]
  14. MAXOLON [Concomitant]
  15. PARACETAMOL [Concomitant]

REACTIONS (5)
  - PETECHIAE [None]
  - PRURITUS GENERALISED [None]
  - PURPURA [None]
  - RASH [None]
  - SKIN INFLAMMATION [None]
